FAERS Safety Report 18729654 (Version 1)
Quarter: 2021Q1

REPORT INFORMATION
  Report Type: Spontaneous
  Country: CH (occurrence: CH)
  Receive Date: 20210112
  Receipt Date: 20210112
  Transmission Date: 20210419
  Serious: Yes (Life-Threatening, Hospitalization)
  Sender: FDA-Public Use
  Company Number: CH-ASTRAZENECA-2021A002304

PATIENT
  Age: 15 Year
  Sex: Male

DRUGS (18)
  1. ACIDUM FOLICUM [Concomitant]
     Active Substance: FOLIC ACID
     Dosage: UNK
     Dates: start: 20191004, end: 20191022
  2. TRAMAL [Concomitant]
     Active Substance: TRAMADOL
     Dosage: UNK, AS NEEDED INTERMITTENT
     Dates: end: 20191022
  3. MEROPENEM. [Suspect]
     Active Substance: MEROPENEM
     Route: 042
     Dates: start: 20191020, end: 20191022
  4. VANCOMYCINE [Suspect]
     Active Substance: VANCOMYCIN
     Route: 042
     Dates: start: 20191002, end: 20191022
  5. DAFALGAN [Concomitant]
     Active Substance: ACETAMINOPHEN
     Dosage: UNK, AS NEEDED INTERMITTENT
     Dates: end: 20191022
  6. FLUCLOXACILLINE [FLUCLOXACILLIN] [Concomitant]
     Dosage: UNK
     Dates: start: 20190926, end: 20191002
  7. NEXIUM [Suspect]
     Active Substance: ESOMEPRAZOLE MAGNESIUM
     Indication: PRODUCT USED FOR UNKNOWN INDICATION
     Route: 048
     Dates: start: 20191004, end: 20191022
  8. MALTOFER [FERRIC HYDROXIDE POLYMALTOSE COMPLEX] [Concomitant]
     Active Substance: IRON POLYMALTOSE
     Dosage: UNK
     Dates: start: 20191005, end: 20191022
  9. MEROPENEM. [Suspect]
     Active Substance: MEROPENEM
     Route: 042
     Dates: start: 20191014, end: 20191018
  10. IRFEN [Suspect]
     Active Substance: IBUPROFEN
     Dosage: 1.8MG INTERMITTENT
     Route: 048
     Dates: start: 20190619, end: 20191022
  11. VITAMINE C [Concomitant]
     Active Substance: ASCORBIC ACID
     Dosage: UNK
     Dates: start: 20191004
  12. CLEXANE [Suspect]
     Active Substance: ENOXAPARIN SODIUM
     Route: 058
     Dates: start: 20191004, end: 20191022
  13. GLUCOSE NACL [Concomitant]
     Dosage: UNK
  14. CETIRIZINE [Concomitant]
     Active Substance: CETIRIZINE HYDROCHLORIDE
     Dosage: UNK, AS NEEDED INTERMITTENT
     Dates: start: 20191015
  15. TRAMAL [Concomitant]
     Active Substance: TRAMADOL
     Dosage: 50 MILLIGRAM, ONCE50.0MG ONCE/SINGLE ADMINISTRATION
     Dates: start: 20191022, end: 20191022
  16. IRFEN [Suspect]
     Active Substance: IBUPROFEN
     Dosage: UNK, AS NEEDED INTERMITTENT
     Route: 065
     Dates: end: 20190925
  17. PIPERACILLIN AND TAZOBACTAM [Suspect]
     Active Substance: PIPERACILLIN SODIUM\TAZOBACTAM SODIUM
     Route: 042
     Dates: start: 20191013, end: 20191014
  18. GENTAMICINE [GENTAMICIN SULFATE] [Concomitant]
     Active Substance: GENTAMICIN SULFATE
     Dosage: UNK
     Dates: start: 20190926, end: 20191002

REACTIONS (1)
  - Drug reaction with eosinophilia and systemic symptoms [Recovered/Resolved]

NARRATIVE: CASE EVENT DATE: 20191012
